FAERS Safety Report 8345169-1 (Version None)
Quarter: 2012Q2

REPORT INFORMATION
  Report Type: 
  Country: None (occurrence: None)
  Receive Date: 20120508
  Receipt Date: 20120502
  Transmission Date: 20120825
  Serious: Yes (Hospitalization)
  Sender: FDA-Public Use
  Company Number: PHHY2012NL038191

PATIENT
  Sex: Female
  Weight: 92 kg

DRUGS (1)
  1. TACROLIMUS [Suspect]
     Indication: CROHN'S DISEASE
     Dosage: 5 MG, BID
     Route: 048
     Dates: start: 20120326, end: 20120405

REACTIONS (5)
  - VOMITING [None]
  - PETECHIAE [None]
  - HYPERTENSION [None]
  - HEPATIC ENZYME INCREASED [None]
  - HEADACHE [None]
